FAERS Safety Report 24722883 (Version 3)
Quarter: 2025Q3

REPORT INFORMATION
  Report Type: Spontaneous
  Country: EU (occurrence: EU)
  Receive Date: 20241211
  Receipt Date: 20250809
  Transmission Date: 20251020
  Serious: Yes (Hospitalization, Other)
  Sender: ALEXION PHARMACEUTICALS
  Company Number: EU-SA-2024SA359191

PATIENT
  Age: 23 Day
  Sex: Female
  Weight: 4 kg

DRUGS (1)
  1. NIRSEVIMAB [Suspect]
     Active Substance: NIRSEVIMAB
     Dates: start: 20241026, end: 20241026

REACTIONS (2)
  - Respiratory syncytial virus bronchiolitis [Unknown]
  - Drug ineffective [Unknown]

NARRATIVE: CASE EVENT DATE: 20241026
